FAERS Safety Report 24418175 (Version 3)
Quarter: 2025Q1

REPORT INFORMATION
  Report Type: Report from Study
  Country: GB (occurrence: GB)
  Receive Date: 20241009
  Receipt Date: 20250207
  Transmission Date: 20250408
  Serious: Yes (Other)
  Sender: TAKEDA
  Company Number: GB-TAKEDA-2024TUS099430

PATIENT
  Sex: Male

DRUGS (2)
  1. VEDOLIZUMAB [Suspect]
     Active Substance: VEDOLIZUMAB
     Indication: Colitis ulcerative
     Dosage: 108 MILLIGRAM, Q2WEEKS
  2. VEDOLIZUMAB [Suspect]
     Active Substance: VEDOLIZUMAB

REACTIONS (10)
  - Dementia Alzheimer^s type [Unknown]
  - Colitis ulcerative [Unknown]
  - Injection site extravasation [Unknown]
  - Product administration error [Unknown]
  - Pain [Unknown]
  - Bowel movement irregularity [Unknown]
  - Bone pain [Unknown]
  - Defaecation urgency [Unknown]
  - Hyperhidrosis [Unknown]
  - Headache [Unknown]
